FAERS Safety Report 14183740 (Version 1)
Quarter: 2017Q4

REPORT INFORMATION
  Report Type: Report from Study
  Country: FR (occurrence: FR)
  Receive Date: 20171113
  Receipt Date: 20171113
  Transmission Date: 20180321
  Serious: Yes (Hospitalization)
  Sender: FDA-Public Use
  Company Number: PHHO2017FR015379

PATIENT
  Age: 7 Year
  Sex: Male

DRUGS (9)
  1. DIFFU K [Concomitant]
     Active Substance: POTASSIUM CHLORIDE
     Indication: PROPHYLAXIS
     Dosage: 2 MG, QD
     Route: 065
     Dates: start: 20170915
  2. RAD 666 / RAD 001A [Suspect]
     Active Substance: EVEROLIMUS
     Indication: LEUKAEMIA RECURRENT
     Dosage: 3 MG, UNK
     Route: 048
     Dates: start: 20171103, end: 20171103
  3. RAD 666 / RAD 001A [Suspect]
     Active Substance: EVEROLIMUS
     Indication: EPENDYMOMA
  4. BACTRIM [Concomitant]
     Active Substance: SULFAMETHOXAZOLE\TRIMETHOPRIM
     Indication: PROPHYLAXIS
     Dosage: 600 UG, QW
     Route: 065
     Dates: start: 20161112
  5. OROCAL [Concomitant]
     Active Substance: CALCIUM CARBONATE
     Indication: PROPHYLAXIS
     Dosage: 1 UG, QD
     Route: 065
     Dates: start: 20170906
  6. DUROGESIC [Concomitant]
     Active Substance: FENTANYL
     Indication: PAIN
     Dosage: 25 UG, PER HOUR
     Route: 065
     Dates: start: 20170928
  7. SOLUPRED [Concomitant]
     Active Substance: PREDNISOLONE
     Indication: PAIN
     Dosage: 20 UG, QD
     Route: 065
     Dates: start: 20171014
  8. LEE011 [Suspect]
     Active Substance: RIBOCICLIB
     Indication: EPENDYMOMA
  9. LEE011 [Suspect]
     Active Substance: RIBOCICLIB
     Indication: LEUKAEMIA RECURRENT
     Dosage: 5.5 ML, UNK
     Route: 048
     Dates: start: 20171103, end: 20171103

REACTIONS (2)
  - Vomiting [Recovered/Resolved]
  - Nausea [Recovered/Resolved]

NARRATIVE: CASE EVENT DATE: 20171104
